FAERS Safety Report 8784549 (Version 1)
Quarter: 2012Q4

REPORT INFORMATION
  Report Type: Spontaneous
  Country: US (occurrence: None)
  Receive Date: 20120831
  Receipt Date: 20120831
  Transmission Date: 20130627
  Serious: Yes (Hospitalization, Other)
  Sender: FDA-Public Use
  Company Number: INT_00116_2012

PATIENT
  Age: 79 Year
  Sex: Male
  Weight: 60 kg

DRUGS (8)
  1. CEFAZOLIN [Suspect]
     Indication: ANTIBIOTIC PROPHYLAXIS
     Route: 042
  2. MIDAZOLAM [Suspect]
     Indication: ANTIBIOTIC PROPHYLAXIS
     Route: 042
  3. ALLOPURINOL [Concomitant]
  4. OMEPRAZOLE [Concomitant]
  5. FENTANYL [Concomitant]
  6. THIOPENTAL [Concomitant]
  7. VECURONIUM [Concomitant]
  8. ISOFLURANE [Concomitant]

REACTIONS (5)
  - Hypotension [None]
  - Anaphylactic reaction [None]
  - Urticaria [None]
  - Hyperglycaemia [None]
  - Chromaturia [None]
